FAERS Safety Report 7765096-8 (Version None)
Quarter: 2011Q3

REPORT INFORMATION
  Report Type: 
  Country: None (occurrence: None)
  Receive Date: 20110916
  Receipt Date: 20110909
  Transmission Date: 20111222
  Serious: Yes (Death, Hospitalization)
  Sender: FDA-Public Use
  Company Number: DSA_47223_2011

PATIENT
  Sex: Female

DRUGS (4)
  1. XANAX [Concomitant]
  2. XENAZINE [Suspect]
     Indication: HUNTINGTON'S DISEASE
     Dosage: (EVERY 4 HOURS ORAL)
     Route: 048
     Dates: start: 20081205, end: 20110720
  3. HALOPERIDOL [Concomitant]
  4. DITROPAN XL [Concomitant]

REACTIONS (1)
  - HEPATIC ENZYME INCREASED [None]
